FAERS Safety Report 19273444 (Version 2)
Quarter: 2025Q3

REPORT INFORMATION
  Report Type: Report from Study
  Country: EU (occurrence: EU)
  Receive Date: 20210519
  Receipt Date: 20250717
  Transmission Date: 20251020
  Serious: Yes (Other)
  Sender: AUROBINDO
  Company Number: EU-002147023-NVSC2021BE098109

PATIENT
  Age: 8 Year
  Sex: Female

DRUGS (1)
  1. AMOXICILLIN [Suspect]
     Active Substance: AMOXICILLIN
     Indication: Product used for unknown indication
     Dosage: 50 MILLIGRAM/KILOGRAM, ONCE A DAY
     Route: 048

REACTIONS (1)
  - Cardio-respiratory arrest [Unknown]
